FAERS Safety Report 7015332-0 (Version None)
Quarter: 2010Q3

REPORT INFORMATION
  Report Type: 
  Country: None (occurrence: None)
  Receive Date: 20100927
  Receipt Date: 20100917
  Transmission Date: 20110219
  Serious: Yes (Other)
  Sender: FDA-Public Use
  Company Number: US-JNJFOC-20100906067

PATIENT
  Age: 61 Year
  Sex: Female

DRUGS (9)
  1. STELARA [Suspect]
     Indication: PSORIASIS
     Route: 058
  2. STELARA [Suspect]
     Route: 058
  3. ADVAIR DISKUS 100/50 [Concomitant]
  4. ALBUTEROL [Concomitant]
  5. CAFFEINE [Concomitant]
  6. CLOBETASOL PROPIONATE [Concomitant]
  7. LISINOPRIL [Concomitant]
  8. LORAZEPAM [Concomitant]
  9. IMIQUIMOD [Concomitant]
     Route: 061

REACTIONS (1)
  - BREAST CANCER [None]
